FAERS Safety Report 22939472 (Version 2)
Quarter: 2024Q1

REPORT INFORMATION
  Report Type: Report from Study
  Country: PH (occurrence: PH)
  Receive Date: 20230913
  Receipt Date: 20240117
  Transmission Date: 20240410
  Serious: Yes (Hospitalization)
  Sender: FDA-Public Use
  Company Number: PH-OTSUKA-2023_023858

PATIENT
  Age: 96 Year
  Sex: Female

DRUGS (2)
  1. TOLVAPTAN [Suspect]
     Active Substance: TOLVAPTAN
     Indication: Polyuria
     Dosage: 15 MG TABLET OF 1 AND 1/4 TABLET A DAY
     Route: 048
  2. TOLVAPTAN [Suspect]
     Active Substance: TOLVAPTAN
     Indication: Blood sodium decreased
     Dosage: 1/2 TABLET, QD
     Route: 048

REACTIONS (7)
  - Pneumonia [Unknown]
  - Dialysis [Recovering/Resolving]
  - Cardiac failure [Unknown]
  - Renal failure [Unknown]
  - Dyspnoea [Recovering/Resolving]
  - Product use in unapproved indication [Unknown]
  - Wrong technique in product usage process [Unknown]

NARRATIVE: CASE EVENT DATE: 20230105
